FAERS Safety Report 5261323-X (Version None)
Quarter: 2007Q1

REPORT INFORMATION
  Report Type: 
  Country: None (occurrence: None)
  Receive Date: 20070307
  Receipt Date: 20070221
  Transmission Date: 20070707
  Serious: Yes (Death, Hospitalization)
  Sender: FDA-Public Use
  Company Number: 2005BI003058

PATIENT
  Age: 38 Year
  Sex: Female

DRUGS (15)
  1. AVONEX [Suspect]
     Indication: MULTIPLE SCLEROSIS
     Dosage: 30 UG;QW;IM
     Route: 030
     Dates: start: 19970710, end: 20030701
  2. AVONEX [Suspect]
     Indication: MULTIPLE SCLEROSIS
     Dosage: 30 UG;QW;IM
     Route: 030
     Dates: start: 20030801, end: 20040701
  3. AVONEX [Suspect]
     Indication: MULTIPLE SCLEROSIS
     Dosage: 30 UG;QW;IM
     Route: 030
     Dates: start: 20040801
  4. AVONEX [Suspect]
  5. AVONEX [Suspect]
  6. OXYCONTIN [Concomitant]
  7. PERCOCET [Concomitant]
  8. AMANTADINE HCL [Concomitant]
  9. ZOLOFT [Concomitant]
  10. HYZAAR [Concomitant]
  11. DILTIAZEM [Concomitant]
  12. IBUPROFEN [Concomitant]
  13. HYDROCHLOROTHIAZIDE [Concomitant]
  14. FLAGYL [Concomitant]
  15. DOXYCYCLINE [Concomitant]

REACTIONS (5)
  - CERVIX CARCINOMA STAGE II [None]
  - OVARIAN CYST [None]
  - PAIN [None]
  - PELVIC INFLAMMATORY DISEASE [None]
  - UTERINE CANCER [None]
